FAERS Safety Report 11516472 (Version 1)
Quarter: 2015Q3

REPORT INFORMATION
  Report Type: Spontaneous
  Country: US (occurrence: None)
  Receive Date: 20150916
  Receipt Date: 20150916
  Transmission Date: 20151125
  Serious: No
  Sender: FDA-Public Use
  Company Number: None

PATIENT
  Age: 52 Year
  Sex: Male

DRUGS (4)
  1. FUROSEMIDE. [Concomitant]
     Active Substance: FUROSEMIDE
  2. TIZANIDINE. [Concomitant]
     Active Substance: TIZANIDINE
  3. LISINOPRIL. [Concomitant]
     Active Substance: LISINOPRIL
  4. AMPYRA [Suspect]
     Active Substance: DALFAMPRIDINE
     Indication: MULTIPLE SCLEROSIS
     Route: 048
     Dates: start: 20150626

REACTIONS (1)
  - Culture urine positive [None]

NARRATIVE: CASE EVENT DATE: 20150915
